FAERS Safety Report 8080657-7 (Version None)
Quarter: 2012Q1

REPORT INFORMATION
  Report Type: 
  Country: None (occurrence: None)
  Receive Date: 20120130
  Receipt Date: 20120117
  Transmission Date: 20120608
  Serious: Yes (Death)
  Sender: FDA-Public Use
  Company Number: PHHY2011MY115185

PATIENT
  Sex: Male
  Weight: 70 kg

DRUGS (6)
  1. CALCITRIOL [Concomitant]
     Dosage: 0.25 UG, QD
     Route: 048
     Dates: start: 20060422
  2. OMEPRAZOLE [Concomitant]
     Dosage: 20 MG, UNK
     Route: 048
     Dates: start: 20060422
  3. MYFORTIC [Concomitant]
     Dosage: 720 MG, BID
     Route: 048
     Dates: start: 20060422
  4. IRBESARTAN [Concomitant]
     Dosage: 150 MG, QD
     Route: 048
     Dates: start: 20060422
  5. PREDNISOLONE [Concomitant]
     Dosage: 5 MG, QD
     Route: 048
     Dates: start: 20060422
  6. CERTICAN [Suspect]

REACTIONS (1)
  - SUDDEN DEATH [None]
